FAERS Safety Report 7968937-4 (Version None)
Quarter: 2011Q4

REPORT INFORMATION
  Report Type: 
  Country: None (occurrence: None)
  Receive Date: 20111209
  Receipt Date: 20111207
  Transmission Date: 20120403
  Serious: Yes (Hospitalization)
  Sender: FDA-Public Use
  Company Number: US-PFIZER INC-2011299163

PATIENT
  Sex: Female
  Weight: 59 kg

DRUGS (2)
  1. CHANTIX [Suspect]
     Indication: SMOKING CESSATION THERAPY
     Dosage: 0.5 MG, 1X/DAY
     Dates: start: 20110201, end: 20110101
  2. FISH OIL [Concomitant]
     Indication: DRUG HYPERSENSITIVITY
     Dosage: UNK

REACTIONS (3)
  - CARDIAC DISORDER [None]
  - BLOOD CHOLESTEROL INCREASED [None]
  - ANXIETY [None]
